FAERS Safety Report 8756474 (Version 2)
Quarter: 2012Q4

REPORT INFORMATION
  Report Type: Spontaneous
  Country: US (occurrence: None)
  Receive Date: 20120814
  Receipt Date: 20120912
  Transmission Date: 20130627
  Serious: Yes (Other)
  Sender: FDA-Public Use
  Company Number: 2012P1049674

PATIENT
  Age: 73 Year
  Sex: Female
  Weight: 82.56 kg

DRUGS (8)
  1. PHENAZOPYRIDINE HCL [Suspect]
     Indication: UTI
     Route: 048
     Dates: start: 20120612, end: 20120614
  2. CIPROFLOXACIN (NO PREF. NAME) [Suspect]
     Indication: URINARY TRACT INFECTION
     Dates: start: 20120614, end: 20120616
  3. LEVOXYL [Concomitant]
  4. LOSARTAN [Concomitant]
  5. ALLEGRA [Concomitant]
  6. NEXIUM [Concomitant]
  7. NORCO 5/325MG [Concomitant]
  8. TYLENOL ARTHRITIS [Concomitant]

REACTIONS (3)
  - Urticaria [None]
  - Oedema mouth [None]
  - Erythema [None]
